FAERS Safety Report 16318128 (Version 10)
Quarter: 2020Q3

REPORT INFORMATION
  Report Type: Report from Study
  Country: None (occurrence: AU)
  Receive Date: 20190516
  Receipt Date: 20200720
  Transmission Date: 20201102
  Serious: Yes (Hospitalization, Other)
  Sender: FDA-Public Use
  Company Number: AU-ABBVIE-19S-008-2777892-00

PATIENT
  Age: 70 Year
  Sex: Female
  Weight: 60 kg

DRUGS (17)
  1. CIRCADIN [Concomitant]
     Active Substance: MELATONIN
     Indication: PRODUCT USED FOR UNKNOWN INDICATION
  2. QUETIAPINE. [Concomitant]
     Active Substance: QUETIAPINE
     Indication: PRODUCT USED FOR UNKNOWN INDICATION
  3. QUETIAPINE. [Concomitant]
     Active Substance: QUETIAPINE
     Indication: PRODUCT USED FOR UNKNOWN INDICATION
  4. CARTIA [Concomitant]
     Indication: PRODUCT USED FOR UNKNOWN INDICATION
  5. DUODOPA [Suspect]
     Active Substance: CARBIDOPA\LEVODOPA
     Route: 050
     Dates: start: 201908, end: 2019
  6. QUETIAPINE. [Concomitant]
     Active Substance: QUETIAPINE
     Indication: PRODUCT USED FOR UNKNOWN INDICATION
  7. VITAMIN B12 [Concomitant]
     Active Substance: CYANOCOBALAMIN
     Indication: VITAMIN B12 DECREASED
     Route: 048
  8. SEROQUEL [Concomitant]
     Active Substance: QUETIAPINE FUMARATE
     Indication: HALLUCINATION
     Route: 048
  9. QUETIAPINE. [Concomitant]
     Active Substance: QUETIAPINE
     Indication: PRODUCT USED FOR UNKNOWN INDICATION
  10. KINSON [Concomitant]
     Active Substance: CARBIDOPA\LEVODOPA
     Indication: PRODUCT USED FOR UNKNOWN INDICATION
     Dosage: 100/25MG
  11. DUODOPA [Suspect]
     Active Substance: CARBIDOPA\LEVODOPA
     Indication: PARKINSON^S DISEASE
     Dosage: 100 ML GEL CASSETTLE, 16 HOURS
     Route: 050
     Dates: start: 20150727
  12. DUODOPA [Suspect]
     Active Substance: CARBIDOPA\LEVODOPA
     Dosage: MD: 12.2 ML, EVENING DOSE: 1 ML, CR: 5ML/HR; EVERY ONE HOUR AS NEEDED
     Route: 050
     Dates: start: 20190417, end: 20190522
  13. SERTRALINE [Concomitant]
     Active Substance: SERTRALINE HYDROCHLORIDE
     Indication: AFFECTIVE DISORDER
     Route: 048
  14. MELATONIN [Concomitant]
     Active Substance: MELATONIN
     Route: 048
  15. MELATONIN [Concomitant]
     Active Substance: MELATONIN
     Indication: SLEEP DISORDER
     Route: 048
  16. DUODOPA [Suspect]
     Active Substance: CARBIDOPA\LEVODOPA
     Dosage: MORNING: 12.2ML, CONTINUOUS RATE: 5.0ML, EXTRA DOSE: 1.0ML
     Route: 050
  17. ACTONEL [Concomitant]
     Active Substance: RISEDRONATE SODIUM
     Indication: OSTEOPOROSIS
     Route: 048

REACTIONS (40)
  - Incorrect route of product administration [Unknown]
  - Patient elopement [Unknown]
  - Dementia [Unknown]
  - Behaviour disorder [Unknown]
  - Drug ineffective [Unknown]
  - Device dislocation [Recovered/Resolved]
  - Back pain [Unknown]
  - Stereotypy [Unknown]
  - Device occlusion [Unknown]
  - Device connection issue [Unknown]
  - Obsessive-compulsive disorder [Unknown]
  - Grimacing [Unknown]
  - Euphoric mood [Unknown]
  - Musculoskeletal stiffness [Unknown]
  - Medical device site mass [Unknown]
  - Dyskinesia [Unknown]
  - Stoma site hypergranulation [Recovered/Resolved]
  - Constipation [Unknown]
  - Device issue [Unknown]
  - Device occlusion [Unknown]
  - Fall [Unknown]
  - Sleep disorder [Unknown]
  - Executive dysfunction [Unknown]
  - Hallucination [Unknown]
  - Device fastener issue [Unknown]
  - Frustration tolerance decreased [Unknown]
  - Visuospatial deficit [Unknown]
  - Balance disorder [Unknown]
  - Granuloma [Unknown]
  - Muscle spasms [Unknown]
  - Device dislocation [Unknown]
  - Fall [Recovered/Resolved]
  - Embedded device [Unknown]
  - Aphasia [Unknown]
  - Urinary incontinence [Unknown]
  - Bradykinesia [Unknown]
  - Freezing phenomenon [Unknown]
  - Adhesion [Unknown]
  - Stoma site hypergranulation [Unknown]
  - Parkinson^s disease [Unknown]

NARRATIVE: CASE EVENT DATE: 2019
